FAERS Safety Report 7607179-9 (Version None)
Quarter: 2011Q3

REPORT INFORMATION
  Report Type: 
  Country: None (occurrence: None)
  Receive Date: 20110713
  Receipt Date: 20110701
  Transmission Date: 20111222
  Serious: Yes (Other)
  Sender: FDA-Public Use
  Company Number: BR-ELI_LILLY_AND_COMPANY-BR201107000499

PATIENT
  Sex: Female
  Weight: 54 kg

DRUGS (9)
  1. TEGRETOL [Concomitant]
     Indication: ANEURYSM
     Dosage: UNK UNK, UNKNOWN
     Route: 065
  2. METICORTEN [Concomitant]
     Indication: PAIN
     Dosage: 5 MG, BID
     Route: 065
  3. SINVASTATINA [Concomitant]
     Indication: BLOOD CHOLESTEROL
     Dosage: UNK, UNKNOWN
     Route: 065
  4. FIXICAL D3 [Concomitant]
     Indication: OSTEOPOROSIS
     Dosage: UNK, UNKNOWN
     Route: 065
  5. ENALAPRIL MALEATE [Concomitant]
     Indication: ARRHYTHMIA
     Dosage: UNK, UNKNOWN
     Route: 065
  6. ARAVA [Concomitant]
     Indication: ARTHRITIS
     Dosage: 20 MG, QD
     Route: 065
  7. KETOPROFEN [Concomitant]
     Indication: PAIN
     Dosage: UNK, UNKNOWN
     Route: 065
  8. FORTEO [Suspect]
     Indication: OSTEOPOROSIS
     Dosage: UNK, QD
     Route: 065
     Dates: start: 20110628
  9. OMEPRAZOLE [Concomitant]
     Indication: GASTRIC ULCER
     Dosage: UNK, UNKNOWN
     Route: 065

REACTIONS (20)
  - HEADACHE [None]
  - FEEDING DISORDER [None]
  - CONSTIPATION [None]
  - BLINDNESS TRANSIENT [None]
  - ANEURYSM [None]
  - TACHYCARDIA [None]
  - DIZZINESS [None]
  - ABDOMINAL PAIN [None]
  - OSTEOPOROSIS [None]
  - BURNING SENSATION [None]
  - ARTERIAL DISORDER [None]
  - DECREASED APPETITE [None]
  - PRURITUS [None]
  - ARTHRALGIA [None]
  - ABDOMINAL DISTENSION [None]
  - MUSCLE SPASMS [None]
  - GASTRIC ULCER [None]
  - VOMITING [None]
  - DYSPNOEA [None]
  - MALAISE [None]
